FAERS Safety Report 7252374-4 (Version None)
Quarter: 2011Q1

REPORT INFORMATION
  Report Type: 
  Country: None (occurrence: None)
  Receive Date: 20110129
  Receipt Date: 20100112
  Transmission Date: 20110831
  Serious: No
  Sender: FDA-Public Use
  Company Number: US-ABBOTT-10P-163-0619368-00

PATIENT
  Sex: Female
  Weight: 77.18 kg

DRUGS (1)
  1. HUMIRA [Suspect]
     Indication: RHEUMATOID ARTHRITIS
     Route: 058
     Dates: start: 20090601

REACTIONS (5)
  - NASAL CONGESTION [None]
  - RHEUMATOID ARTHRITIS [None]
  - RHINORRHOEA [None]
  - PRODUCTIVE COUGH [None]
  - NASOPHARYNGITIS [None]
